FAERS Safety Report 18568731 (Version 2)
Quarter: 2021Q1

REPORT INFORMATION
  Report Type: Spontaneous
  Country: BR (occurrence: BR)
  Receive Date: 20201202
  Receipt Date: 20210327
  Transmission Date: 20210419
  Serious: Yes (Other)
  Sender: FDA-Public Use
  Company Number: NVSC2020BR318287

PATIENT
  Age: 46 Year

DRUGS (3)
  1. CYCLOSPORINE. [Suspect]
     Active Substance: CYCLOSPORINE
     Indication: RENAL FAILURE
     Dosage: UNK
     Route: 065
  2. METHOTREXATE. [Suspect]
     Active Substance: METHOTREXATE
     Indication: RENAL FAILURE
     Dosage: UNK
     Route: 065
  3. SECUKINUMAB. [Suspect]
     Active Substance: SECUKINUMAB
     Indication: PRODUCT USED FOR UNKNOWN INDICATION
     Dosage: SINCE 52 WEEKS AGO
     Route: 065
     Dates: start: 2019

REACTIONS (2)
  - Drug resistance [Unknown]
  - Chronic kidney disease [Unknown]
